FAERS Safety Report 4507484-9 (Version None)
Quarter: 2004Q4

REPORT INFORMATION
  Report Type: 
  Country: None (occurrence: None)
  Receive Date: 20041118
  Receipt Date: 20041109
  Transmission Date: 20050328
  Serious: Yes (Hospitalization, Other)
  Sender: FDA-Public Use
  Company Number: 2004091171

PATIENT
  Age: 77 Year
  Sex: Female

DRUGS (6)
  1. LIPITOR [Suspect]
     Indication: ILL-DEFINED DISORDER
     Dosage: 40 MG (40 MG, 1 IN 1 D), ORAL
     Route: 048
     Dates: start: 19960101, end: 20040914
  2. GEMFIBROZIL [Suspect]
     Indication: ILL-DEFINED DISORDER
     Dosage: 1200 MG (600 MG, 2 IN 1 D), ORAL
     Route: 048
     Dates: start: 20020101, end: 20040914
  3. AMLODIPINE (AMLODIPINE) [Concomitant]
  4. ATENOLOL [Concomitant]
  5. DICLOFENAC (DICLOFENAC) [Concomitant]
  6. EZETIMIBE (EZETIMIBE) [Concomitant]

REACTIONS (10)
  - APATHY [None]
  - BLOOD ALKALINE PHOSPHATASE INCREASED [None]
  - BLOOD AMYLASE INCREASED [None]
  - BLOOD LACTATE DEHYDROGENASE [None]
  - DRUG INTERACTION [None]
  - GAMMA-GLUTAMYLTRANSFERASE INCREASED [None]
  - HEPATIC FUNCTION ABNORMAL [None]
  - INFLUENZA LIKE ILLNESS [None]
  - RENAL FAILURE [None]
  - RHABDOMYOLYSIS [None]
